FAERS Safety Report 15251469 (Version 1)
Quarter: 2018Q3

REPORT INFORMATION
  Report Type: Spontaneous
  Country: GB (occurrence: GB)
  Receive Date: 20180807
  Receipt Date: 20180807
  Transmission Date: 20181010
  Serious: Yes (Hospitalization)
  Sender: FDA-Public Use
  Company Number: GB-PFIZER INC-2018317850

PATIENT
  Age: 58 Year
  Sex: Female

DRUGS (18)
  1. IBUPROFEN. [Suspect]
     Active Substance: IBUPROFEN
     Indication: ARTHRALGIA
     Dosage: 400 MG, UNK
     Route: 048
     Dates: end: 20180704
  2. LEFLUNOMIDE. [Suspect]
     Active Substance: LEFLUNOMIDE
     Indication: RHEUMATOID ARTHRITIS
     Dosage: 20 MG, UNK
     Route: 048
  3. OMEPRAZOLE SODIUM [Concomitant]
     Active Substance: OMEPRAZOLE SODIUM
  4. WARFARIN [Suspect]
     Active Substance: WARFARIN
     Indication: ATRIAL FIBRILLATION
     Dosage: UNK
     Route: 048
     Dates: end: 20180704
  5. AMITRIPTYLINE HYDROCHLORIDE. [Concomitant]
     Active Substance: AMITRIPTYLINE HYDROCHLORIDE
     Dosage: UNK
  6. ALVERINE CITRATE [Concomitant]
     Active Substance: ALVERINE CITRATE
  7. SOLIFENACIN [Concomitant]
     Active Substance: SOLIFENACIN
  8. FOLIC ACID. [Concomitant]
     Active Substance: FOLIC ACID
  9. COCODAMOL [Concomitant]
     Active Substance: ACETAMINOPHEN\CODEINE PHOSPHATE
  10. LIDOCAINE. [Concomitant]
     Active Substance: LIDOCAINE
     Dosage: UNK
  11. LEVOTHYROXINE SODIUM. [Concomitant]
     Active Substance: LEVOTHYROXINE SODIUM
     Dosage: UNK
  12. TRAMADOL. [Concomitant]
     Active Substance: TRAMADOL
     Dosage: UNK
  13. CALCICHEW D3 [Concomitant]
     Active Substance: CALCIUM\CHOLECALCIFEROL
  14. FLUOXETINE HYDROCHLORIDE. [Concomitant]
     Active Substance: FLUOXETINE HYDROCHLORIDE
  15. ATORVASTATIN CALCIUM. [Concomitant]
     Active Substance: ATORVASTATIN CALCIUM
     Dosage: UNK
  16. SALBUTAMOL [Concomitant]
     Active Substance: ALBUTEROL
     Dosage: UNK
  17. ALENDRONIC ACID [Concomitant]
     Active Substance: ALENDRONIC ACID
  18. SIRDUPLA [Concomitant]
     Active Substance: FLUTICASONE PROPIONATE\SALMETEROL XINAFOATE

REACTIONS (1)
  - Epistaxis [Recovering/Resolving]

NARRATIVE: CASE EVENT DATE: 20180703
